FAERS Safety Report 10783616 (Version 7)
Quarter: 2015Q2

REPORT INFORMATION
  Report Type: Spontaneous
  Country: US (occurrence: US)
  Receive Date: 20150210
  Receipt Date: 20150612
  Transmission Date: 20150821
  Serious: Yes (Hospitalization, Other)
  Sender: FDA-Public Use
  Company Number: US-009507513-1107USA03579

PATIENT
  Sex: Female
  Weight: 55.33 kg

DRUGS (3)
  1. ALENDRONATE SODIUM. [Suspect]
     Active Substance: ALENDRONATE SODIUM
     Dosage: 70 MG, UNK
     Route: 048
     Dates: start: 20070629, end: 20090526
  2. FOSAMAX [Suspect]
     Active Substance: ALENDRONATE SODIUM
     Indication: BONE DENSITY DECREASED
     Dosage: 10 MG, QD
     Route: 048
     Dates: start: 199706, end: 200108
  3. FOSAMAX [Suspect]
     Active Substance: ALENDRONATE SODIUM
     Indication: OSTEOPENIA
     Dosage: 70 MG, QW
     Route: 048
     Dates: start: 20010906, end: 20080325

REACTIONS (30)
  - Tinnitus [Unknown]
  - Fall [Unknown]
  - Medical device removal [Unknown]
  - Drug ineffective [Unknown]
  - Headache [Unknown]
  - Rib fracture [Recovering/Resolving]
  - Anxiety [Unknown]
  - Bursitis [Unknown]
  - Epicondylitis [Unknown]
  - Post-traumatic stress disorder [Unknown]
  - Femur fracture [Recovered/Resolved with Sequelae]
  - Rhinitis allergic [Unknown]
  - Hypercholesterolaemia [Unknown]
  - Intramedullary rod insertion [Unknown]
  - Basal cell carcinoma [Unknown]
  - Pulmonary mass [Unknown]
  - Varicose vein [Unknown]
  - Appendicectomy [Unknown]
  - Biopsy breast [Unknown]
  - Medical device complication [Unknown]
  - Basal cell carcinoma [Unknown]
  - Bunion operation [Unknown]
  - Road traffic accident [Unknown]
  - Atrophic vulvovaginitis [Unknown]
  - Abdominoplasty [Unknown]
  - Feeling abnormal [Unknown]
  - Insomnia [Unknown]
  - Mammogram abnormal [Unknown]
  - Peripheral venous disease [Unknown]
  - Drug intolerance [Unknown]

NARRATIVE: CASE EVENT DATE: 199810
